FAERS Safety Report 25250044 (Version 1)
Quarter: 2025Q2

REPORT INFORMATION
  Report Type: Report from Study
  Country: CA (occurrence: CA)
  Receive Date: 20250429
  Receipt Date: 20250429
  Transmission Date: 20250716
  Serious: Yes (Other)
  Sender: SANDOZ
  Company Number: CA-SANDOZ-SDZ2023CA068748

PATIENT
  Sex: Male

DRUGS (7)
  1. AMLODIPINE [Suspect]
     Active Substance: AMLODIPINE BESYLATE
     Indication: Product used for unknown indication
     Route: 065
  2. AZITHROMYCIN [Suspect]
     Active Substance: AZITHROMYCIN
     Indication: Product used for unknown indication
     Route: 065
  3. CANAGLIFLOZIN [Suspect]
     Active Substance: CANAGLIFLOZIN
     Indication: Product used for unknown indication
     Route: 065
  4. METOPROLOL [Suspect]
     Active Substance: METOPROLOL
     Indication: Product used for unknown indication
     Route: 065
  5. RITUXIMAB [Suspect]
     Active Substance: RITUXIMAB
     Indication: Dermatomyositis
     Route: 042
     Dates: start: 20240122
  6. RITUXIMAB [Suspect]
     Active Substance: RITUXIMAB
     Indication: Inclusion body myositis
     Route: 042
     Dates: start: 20240122
  7. RITUXIMAB [Suspect]
     Active Substance: RITUXIMAB
     Indication: Incorrect route of product administration

REACTIONS (7)
  - Cardiac failure congestive [Unknown]
  - Rash [Unknown]
  - Bundle branch block right [Unknown]
  - Drug intolerance [Unknown]
  - Product prescribing issue [Unknown]
  - Product dose omission issue [Unknown]
  - Off label use [Unknown]
